FAERS Safety Report 5105739-0 (Version None)
Quarter: 2006Q3

REPORT INFORMATION
  Report Type: 
  Country: None (occurrence: None)
  Receive Date: 20060915
  Receipt Date: 20060906
  Transmission Date: 20061208
  Serious: Yes (Disabling)
  Sender: FDA-Public Use
  Company Number: US-KINGPHARMUSA00001-K200601131

PATIENT
  Age: 66 Year
  Sex: Female

DRUGS (2)
  1. ALTACE [Suspect]
     Indication: HYPERTENSIVE HEART DISEASE
     Dosage: 2.5 MG, UNK
     Route: 048
     Dates: start: 20040401, end: 20060501
  2. CAPTOPRIL [Concomitant]
     Indication: HYPERTENSIVE HEART DISEASE
     Dosage: UNK, UNK
     Route: 048
     Dates: end: 20040101

REACTIONS (4)
  - ARRHYTHMIA [None]
  - BRADYCARDIA [None]
  - SUPRAVENTRICULAR EXTRASYSTOLES [None]
  - VENTRICULAR EXTRASYSTOLES [None]
